FAERS Safety Report 5497152-1 (Version None)
Quarter: 2007Q4

REPORT INFORMATION
  Report Type: 
  Country: None (occurrence: None)
  Receive Date: 20071025
  Receipt Date: 20060915
  Transmission Date: 20080405
  Serious: No
  Sender: FDA-Public Use
  Company Number: A0551451A

PATIENT
  Age: 7 Year
  Sex: Female
  Weight: 26.8 kg

DRUGS (3)
  1. ADVAIR DISKUS 100/50 [Suspect]
     Dosage: 1PUFF TWICE PER DAY
     Route: 055
     Dates: start: 20041201, end: 20050301
  2. LORATADINE [Concomitant]
     Dosage: 10MG PER DAY
     Route: 048
  3. ALBUTEROL [Concomitant]
     Dosage: 2PUFF AS REQUIRED
     Route: 055

REACTIONS (5)
  - ANGER [None]
  - IRRITABILITY [None]
  - MOOD SWINGS [None]
  - SKIN ODOUR ABNORMAL [None]
  - WEIGHT INCREASED [None]
